FAERS Safety Report 7299082-1 (Version None)
Quarter: 2011Q1

REPORT INFORMATION
  Report Type: 
  Country: None (occurrence: None)
  Receive Date: 20110217
  Receipt Date: 20110211
  Transmission Date: 20110831
  Serious: Yes (Hospitalization)
  Sender: FDA-Public Use
  Company Number: GR-BRISTOL-MYERS SQUIBB COMPANY-15547318

PATIENT
  Age: 32 Year
  Sex: Male

DRUGS (2)
  1. ZOLOFT [Concomitant]
     Indication: DEPRESSION
  2. ABILIFY [Suspect]
     Dosage: STRATED AS 5 MG AND INCREASED TO 10MG
     Route: 048

REACTIONS (1)
  - PULMONARY EMBOLISM [None]
